FAERS Safety Report 20079290 (Version 1)
Quarter: 2021Q4

REPORT INFORMATION
  Report Type: Spontaneous
  Country: CA (occurrence: None)
  Receive Date: 20211117
  Receipt Date: 20211117
  Transmission Date: 20220303
  Serious: Yes (Other)
  Sender: FDA-Public Use
  Company Number: CA-ROCHE-2953387

PATIENT
  Age: 27 Year
  Sex: Female

DRUGS (4)
  1. ACTEMRA [Suspect]
     Active Substance: TOCILIZUMAB
     Indication: Rheumatoid arthritis
     Route: 065
  2. INFLIXIMAB [Suspect]
     Active Substance: INFLIXIMAB
     Indication: Rheumatoid arthritis
     Dosage: SUBSEQUENT DOSES RECEIVED ON 19/JUL/2020, 24/SEP/2020,17/DEC/2020 (LOT NO.DY0028),28/JAN/2021 (LOT N
     Route: 042
     Dates: start: 20191230, end: 20200602
  3. METHOTREXATE [Concomitant]
     Active Substance: METHOTREXATE
     Dates: start: 2011
  4. LEFLUNOMIDE [Concomitant]
     Active Substance: LEFLUNOMIDE
     Dates: start: 2017

REACTIONS (7)
  - Uveitis [Unknown]
  - Heart rate decreased [Unknown]
  - Weight increased [Unknown]
  - Oedema [Not Recovered/Not Resolved]
  - Inappropriate schedule of product administration [Unknown]
  - Treatment failure [Unknown]
  - Skin papilloma [Recovering/Resolving]

NARRATIVE: CASE EVENT DATE: 20200924
